FAERS Safety Report 9187173 (Version 2)
Quarter: 2013Q1

REPORT INFORMATION
  Report Type: Report from Study
  Country: DE (occurrence: DE)
  Receive Date: 20130322
  Receipt Date: 20130328
  Transmission Date: 20140127
  Serious: Yes (Other)
  Sender: FDA-Public Use
  Company Number: DE-ROCHE-1205004

PATIENT
  Sex: 0

DRUGS (4)
  1. ALTEPLASE [Suspect]
     Indication: RETINAL HAEMORRHAGE
     Route: 050
  2. ALTEPLASE [Suspect]
     Route: 050
  3. ALTEPLASE [Suspect]
     Route: 050
  4. PHENPROCOUMON [Suspect]
     Indication: ANTICOAGULANT THERAPY
     Route: 065

REACTIONS (1)
  - Endophthalmitis [Unknown]
